FAERS Safety Report 9999079 (Version 2)
Quarter: 2014Q1

REPORT INFORMATION
  Report Type: Report from Study
  Country: IT (occurrence: IT)
  Receive Date: 20140312
  Receipt Date: 20140324
  Transmission Date: 20141002
  Serious: Yes (Hospitalization)
  Sender: FDA-Public Use
  Company Number: IT-ROCHE-1358812

PATIENT
  Age: 76 Year
  Sex: Female

DRUGS (39)
  1. PERTUZUMAB [Suspect]
     Indication: BREAST CANCER
     Dosage: LOADING DOSE
     Route: 042
     Dates: start: 20131125
  2. PERTUZUMAB [Suspect]
     Dosage: MAINTANENCE DOSE, MOST RECENT DOSE PRIOR TO SAE: 10/FEB/2014.
     Route: 042
     Dates: start: 20131216
  3. TRASTUZUMAB [Suspect]
     Indication: BREAST CANCER
     Dosage: LOADING DOSE
     Route: 042
     Dates: start: 20131125
  4. TRASTUZUMAB [Suspect]
     Dosage: MAINTANENCE DOSE, MOST RECENT DOSE PRIOR TO SAE: 10/FEB/2014.
     Route: 042
     Dates: start: 20131216
  5. DOCETAXEL [Suspect]
     Indication: BREAST CANCER
     Dosage: MOST RECENT DOSE PRIOR TO SAE: 10/FEB/2014.
     Route: 042
     Dates: start: 20131125
  6. TRIATEC (ITALY) [Concomitant]
     Route: 065
     Dates: start: 20131025
  7. TRIATEC (ITALY) [Concomitant]
     Route: 065
     Dates: start: 20131025
  8. PANTORC [Concomitant]
     Indication: PROPHYLAXIS
     Route: 065
     Dates: start: 20130925
  9. PANTORC [Concomitant]
     Route: 065
     Dates: start: 20131025
  10. OXYCONTIN [Concomitant]
     Route: 065
     Dates: start: 20131025
  11. HUMALOG [Concomitant]
     Dosage: 10 U
     Route: 065
     Dates: start: 2010
  12. ORAMORPH [Concomitant]
     Dosage: (ON DEMAND)
     Route: 065
     Dates: start: 20131128
  13. DELTACORTENE [Concomitant]
     Route: 065
     Dates: start: 20131203
  14. LASIX [Concomitant]
     Route: 065
     Dates: start: 20130925
  15. LASIX [Concomitant]
     Route: 065
     Dates: start: 20131025
  16. FILGRASTIM [Concomitant]
     Dosage: 0.5 MU
     Route: 065
     Dates: start: 20140215, end: 20140221
  17. CIPROFLOXACINA [Concomitant]
     Route: 065
     Dates: start: 20140215, end: 20140221
  18. CLEXANE [Concomitant]
     Route: 065
     Dates: start: 20131025
  19. CLEXANE [Concomitant]
     Route: 065
     Dates: start: 20131128
  20. CLEXANE [Concomitant]
     Route: 065
     Dates: start: 20140208, end: 20140306
  21. PLASIL [Concomitant]
     Route: 065
     Dates: start: 20131206, end: 20131206
  22. AMIKACINA [Concomitant]
     Route: 065
     Dates: start: 20131203, end: 20131212
  23. PREDNISONE [Concomitant]
     Route: 065
     Dates: start: 20131125, end: 20131125
  24. PREDNISONE [Concomitant]
     Route: 065
     Dates: start: 20131217, end: 20131217
  25. PREDNISONE [Concomitant]
     Route: 065
     Dates: start: 20140114, end: 20140114
  26. PARACETAMOL [Concomitant]
     Route: 065
     Dates: start: 20131125, end: 20131125
  27. PARACETAMOL [Concomitant]
     Route: 065
     Dates: start: 20131217, end: 20131217
  28. PARACETAMOL [Concomitant]
     Route: 065
     Dates: start: 20140114, end: 20140114
  29. RANITIDINA [Concomitant]
     Route: 065
     Dates: start: 20131125, end: 20131125
  30. RANITIDINA [Concomitant]
     Route: 065
     Dates: start: 20131217, end: 20131217
  31. RANITIDINA [Concomitant]
     Route: 065
     Dates: start: 20140114, end: 20140114
  32. LANTUS [Concomitant]
     Dosage: 8 U
     Route: 065
     Dates: start: 2010
  33. ORUDIS [Concomitant]
     Route: 065
     Dates: start: 20131025, end: 20131128
  34. ZOMETA [Concomitant]
     Route: 065
     Dates: start: 20131027
  35. FLUXUM [Concomitant]
     Dosage: 4250 MU
     Route: 065
     Dates: start: 20131128
  36. DEXAMETHASONE [Concomitant]
     Route: 065
     Dates: start: 20131125, end: 20131125
  37. DEXAMETHASONE [Concomitant]
     Route: 065
     Dates: start: 20131217, end: 20131217
  38. DEXAMETHASONE [Concomitant]
     Route: 065
     Dates: start: 20140114, end: 20140114
  39. FUROSEMIDE [Concomitant]
     Route: 065
     Dates: start: 20131207

REACTIONS (1)
  - Deep vein thrombosis [Recovered/Resolved with Sequelae]
